FAERS Safety Report 12105586 (Version 1)
Quarter: 2016Q1

REPORT INFORMATION
  Report Type: Report from Study
  Country: BR (occurrence: BR)
  Receive Date: 20160223
  Receipt Date: 20160223
  Transmission Date: 20160526
  Serious: Yes (Hospitalization)
  Sender: FDA-Public Use
  Company Number: BR-B.I. PHARMACEUTICALS,INC./RIDGEFIELD-2015-BI-56952BR

PATIENT
  Sex: Female
  Weight: 60 kg

DRUGS (8)
  1. MICARDIS [Suspect]
     Active Substance: TELMISARTAN
     Dosage: 160 MG
     Route: 048
     Dates: start: 201512
  2. SELOZOK [Concomitant]
     Active Substance: METOPROLOL SUCCINATE
     Indication: HYPERTENSION
     Dosage: 100 MG
     Route: 048
     Dates: start: 2005
  3. METILDOPA [Concomitant]
     Active Substance: METHYLDOPA
     Indication: HYPERTENSION
     Dosage: 250 MG
     Route: 048
     Dates: start: 201508
  4. MICARDIS [Suspect]
     Active Substance: TELMISARTAN
     Indication: PRODUCT USED FOR UNKNOWN INDICATION
     Dosage: 40 MG
     Route: 048
     Dates: start: 2005, end: 201512
  5. VITAMIN D [Concomitant]
     Active Substance: CHOLECALCIFEROL
     Indication: OSTEOARTHRITIS
     Dosage: DOSE PER APPLICATION: 5 DROPS; DAILY DOSE: 5 DROPS DURING THE CRISIS;
     Route: 048
     Dates: start: 2012
  6. PRESSAT [Concomitant]
     Active Substance: AMLODIPINE BESYLATE
     Indication: HYPERTENSION
     Dosage: 5 MG
     Route: 048
  7. CALCIUM [Concomitant]
     Active Substance: CALCIUM
     Indication: OSTEOARTHRITIS
     Route: 048
     Dates: start: 2014
  8. CITONEURIN [Concomitant]
     Active Substance: CYANOCOBALAMIN\PYRIDOXINE HYDROCHLORIDE\THIAMINE
     Indication: OSTEOARTHRITIS
     Dosage: DOSE PER APPLICATION AND DAILY DOSE: 5000(UNIT NOT REPORTED);
     Route: 048
     Dates: start: 201508

REACTIONS (5)
  - Pulmonary oedema [Recovered/Resolved]
  - Renal disorder [Not Recovered/Not Resolved]
  - Blood pressure increased [Recovered/Resolved]
  - Medication error [Recovered/Resolved]
  - Overdose [Not Recovered/Not Resolved]

NARRATIVE: CASE EVENT DATE: 2005
